FAERS Safety Report 25167548 (Version 2)
Quarter: 2025Q2

REPORT INFORMATION
  Report Type: Spontaneous
  Country: US (occurrence: US)
  Receive Date: 20250407
  Receipt Date: 20250510
  Transmission Date: 20250717
  Serious: No
  Sender: SANOFI AVENTIS
  Company Number: US-SA-2025SA098090

PATIENT
  Sex: Male
  Weight: 56.82 kg

DRUGS (1)
  1. DUPIXENT [Suspect]
     Active Substance: DUPILUMAB
     Indication: Dermatitis atopic
     Dosage: 200 MG, QOW
     Route: 058
     Dates: start: 20240919

REACTIONS (6)
  - Eye pain [Recovered/Resolved]
  - Sinus disorder [Recovered/Resolved]
  - Headache [Recovered/Resolved]
  - Nasopharyngitis [Recovered/Resolved]
  - Cough [Recovered/Resolved]
  - Paranasal sinus discomfort [Recovered/Resolved]
